FAERS Safety Report 7310608-1 (Version None)
Quarter: 2011Q1

REPORT INFORMATION
  Report Type: 
  Country: None (occurrence: None)
  Receive Date: 20110224
  Receipt Date: 20100406
  Transmission Date: 20110831
  Serious: No
  Sender: FDA-Public Use
  Company Number: US-BRISTOL-MYERS SQUIBB COMPANY-15051097

PATIENT

DRUGS (1)
  1. GLUCOPHAGE [Suspect]

REACTIONS (3)
  - ORAL PAIN [None]
  - ORAL DISCOMFORT [None]
  - DYSGEUSIA [None]
